FAERS Safety Report 20695260 (Version 3)
Quarter: 2022Q3

REPORT INFORMATION
  Report Type: Report from Study
  Country: US (occurrence: US)
  Receive Date: 20220411
  Receipt Date: 20220825
  Transmission Date: 20221027
  Serious: Yes (Other)
  Sender: FDA-Public Use
  Company Number: US-PFIZER INC-202200497333

PATIENT
  Age: 73 Year
  Sex: Female

DRUGS (3)
  1. CELEBREX [Suspect]
     Active Substance: CELECOXIB
     Indication: Arthralgia
     Dosage: UNK
  2. OFEV [Suspect]
     Active Substance: NINTEDANIB
     Indication: Pulmonary fibrosis
     Dosage: 300.0 MILLIGRAM(S) (150 MILLIGRAM(S)), 1 IN 0.5 DAY
     Route: 048
     Dates: start: 20200101, end: 20210507
  3. OFEV [Suspect]
     Active Substance: NINTEDANIB
     Indication: Fibrosis

REACTIONS (18)
  - Pulmonary hypertension [Unknown]
  - Pulmonary fibrosis [Not Recovered/Not Resolved]
  - Arthralgia [Unknown]
  - Hip surgery [Unknown]
  - Drug ineffective [Not Recovered/Not Resolved]
  - Diarrhoea [Recovered/Resolved]
  - Headache [Not Recovered/Not Resolved]
  - Vomiting [Recovered/Resolved]
  - Epistaxis [Recovered/Resolved]
  - Fatigue [Not Recovered/Not Resolved]
  - Pain [Unknown]
  - Eye swelling [Unknown]
  - Ocular hyperaemia [Unknown]
  - Hot flush [Unknown]
  - Rhinorrhoea [Not Recovered/Not Resolved]
  - Dehydration [Unknown]
  - Cough [Not Recovered/Not Resolved]
  - Nausea [Unknown]

NARRATIVE: CASE EVENT DATE: 20201201
